FAERS Safety Report 25183273 (Version 1)
Quarter: 2025Q2

REPORT INFORMATION
  Report Type: Spontaneous
  Country: US (occurrence: US)
  Receive Date: 20250410
  Receipt Date: 20250410
  Transmission Date: 20250716
  Serious: Yes (Hospitalization)
  Sender: MYLAN
  Company Number: US-MYLANLABS-2025M1030045

PATIENT
  Age: 66 Year
  Sex: Male

DRUGS (16)
  1. TACROLIMUS [Suspect]
     Active Substance: TACROLIMUS
     Indication: Immunosuppressant drug therapy
  2. TACROLIMUS [Suspect]
     Active Substance: TACROLIMUS
     Route: 065
  3. TACROLIMUS [Suspect]
     Active Substance: TACROLIMUS
     Route: 065
  4. TACROLIMUS [Suspect]
     Active Substance: TACROLIMUS
  5. PREDNISONE [Suspect]
     Active Substance: PREDNISONE
     Indication: Immunosuppressant drug therapy
  6. PREDNISONE [Suspect]
     Active Substance: PREDNISONE
     Route: 065
  7. PREDNISONE [Suspect]
     Active Substance: PREDNISONE
     Route: 065
  8. PREDNISONE [Suspect]
     Active Substance: PREDNISONE
  9. MYCOPHENOLATE MOFETIL [Suspect]
     Active Substance: MYCOPHENOLATE MOFETIL
     Indication: Immunosuppressant drug therapy
  10. MYCOPHENOLATE MOFETIL [Suspect]
     Active Substance: MYCOPHENOLATE MOFETIL
     Route: 065
  11. MYCOPHENOLATE MOFETIL [Suspect]
     Active Substance: MYCOPHENOLATE MOFETIL
     Route: 065
  12. MYCOPHENOLATE MOFETIL [Suspect]
     Active Substance: MYCOPHENOLATE MOFETIL
  13. FLUOROURACIL [Suspect]
     Active Substance: FLUOROURACIL
     Indication: Squamous cell carcinoma
     Dosage: UNK, QD (1?G/M2 PER DAY ON FOR 14?DAYS AND OFF FOR 7?DAYS; 2?CYCLES)
  14. FLUOROURACIL [Suspect]
     Active Substance: FLUOROURACIL
     Indication: Actinic keratosis
     Dosage: UNK, QD (1?G/M2 PER DAY ON FOR 14?DAYS AND OFF FOR 7?DAYS; 2?CYCLES)
     Route: 048
  15. FLUOROURACIL [Suspect]
     Active Substance: FLUOROURACIL
     Dosage: UNK, QD (1?G/M2 PER DAY ON FOR 14?DAYS AND OFF FOR 7?DAYS; 2?CYCLES)
     Route: 048
  16. FLUOROURACIL [Suspect]
     Active Substance: FLUOROURACIL
     Dosage: UNK, QD (1?G/M2 PER DAY ON FOR 14?DAYS AND OFF FOR 7?DAYS; 2?CYCLES)

REACTIONS (2)
  - Paradoxical drug reaction [Unknown]
  - Squamous cell carcinoma of skin [Unknown]
